FAERS Safety Report 21806292 (Version 1)
Quarter: 2023Q1

REPORT INFORMATION
  Report Type: Spontaneous
  Country: FR (occurrence: FR)
  Receive Date: 20230102
  Receipt Date: 20230102
  Transmission Date: 20230418
  Serious: Yes (Death, Other)
  Sender: FDA-Public Use
  Company Number: FR-AFSSAPS-BX20225446

PATIENT
  Age: 22 Year
  Sex: Male
  Weight: 135 kg

DRUGS (2)
  1. RIFAMPIN [Suspect]
     Active Substance: RIFAMPIN
     Indication: Staphylococcal abscess
     Dosage: 300 MG, TID
     Route: 048
     Dates: start: 202208, end: 20221111
  2. CUBICIN [Suspect]
     Active Substance: DAPTOMYCIN
     Indication: Staphylococcal abscess
     Dosage: 1500 MG, QD
     Route: 042
     Dates: start: 202208, end: 20221111

REACTIONS (1)
  - Disseminated intravascular coagulation [Fatal]

NARRATIVE: CASE EVENT DATE: 20221111
